FAERS Safety Report 16799689 (Version 1)
Quarter: 2019Q3

REPORT INFORMATION
  Report Type: Spontaneous
  Country: US (occurrence: US)
  Receive Date: 20190722
  Receipt Date: 20190722
  Transmission Date: 20191005
  Serious: No
  Sender: FDA-Public Use
  Company Number: None

PATIENT

DRUGS (2)
  1. DILTIAZEM CD 120MGM CAPSULE [Suspect]
     Active Substance: DILTIAZEM HYDROCHLORIDE
     Indication: BLOOD PRESSURE INCREASED
     Dosage: ?          QUANTITY:120 MG MILLIGRAM(S);?
  2. DILTIAZEM ER 120MG [Suspect]
     Active Substance: DILTIAZEM
     Dosage: ?          QUANTITY:120 MG MILLIGRAM(S);?

REACTIONS (3)
  - Product dosage form confusion [None]
  - Product prescribing error [None]
  - Incorrect product dosage form administered [None]

NARRATIVE: CASE EVENT DATE: 20190505
